FAERS Safety Report 7020024-8 (Version None)
Quarter: 2010Q3

REPORT INFORMATION
  Report Type: 
  Country: None (occurrence: None)
  Receive Date: 20100929
  Receipt Date: 20100921
  Transmission Date: 20110219
  Serious: Yes (Other)
  Sender: FDA-Public Use
  Company Number: BR-JNJFOC-20100907377

PATIENT
  Age: 55 Year
  Sex: Female
  Weight: 60 kg

DRUGS (2)
  1. HALDOL [Suspect]
     Indication: NERVOUSNESS
     Route: 065
  2. HALDOL [Suspect]
     Route: 065

REACTIONS (2)
  - ASTHENIA [None]
  - MUSCLE RIGIDITY [None]
